FAERS Safety Report 20870622 (Version 2)
Quarter: 2022Q3

REPORT INFORMATION
  Report Type: Report from Study
  Country: US (occurrence: US)
  Receive Date: 20220525
  Receipt Date: 20220825
  Transmission Date: 20221027
  Serious: No
  Sender: FDA-Public Use
  Company Number: US-Ipsen Biopharmaceuticals, Inc.-2022-14304

PATIENT
  Age: 49 Year
  Sex: Male

DRUGS (2)
  1. SOMATULINE DEPOT [Suspect]
     Active Substance: LANREOTIDE ACETATE
     Indication: Carcinoid tumour in the large intestine
     Dosage: 120MG/0.5ML
     Route: 058
     Dates: start: 202111
  2. SOMATULINE DEPOT [Suspect]
     Active Substance: LANREOTIDE ACETATE
     Indication: Neuroendocrine tumour

REACTIONS (3)
  - Fatigue [Recovering/Resolving]
  - Faeces soft [Not Recovered/Not Resolved]
  - Faeces pale [Not Recovered/Not Resolved]
